FAERS Safety Report 26086368 (Version 1)
Quarter: 2025Q4

REPORT INFORMATION
  Report Type: Spontaneous
  Country: CN (occurrence: CN)
  Receive Date: 20251125
  Receipt Date: 20251125
  Transmission Date: 20260118
  Serious: Yes (Hospitalization, Other)
  Sender: SANOFI AVENTIS
  Company Number: CN-SA-2025SA346800

PATIENT
  Age: 83 Year
  Sex: Female
  Weight: 55 kg

DRUGS (3)
  1. CLOPIDOGREL BISULFATE [Suspect]
     Active Substance: CLOPIDOGREL BISULFATE
     Indication: Cerebral infarction
     Dosage: 75 MG, QD
     Route: 048
     Dates: start: 20250604, end: 20251026
  2. DICLOFENAC SODIUM [Suspect]
     Active Substance: DICLOFENAC SODIUM
     Indication: Pain in extremity
     Dosage: 50 MG, BID
     Route: 048
     Dates: start: 20250918, end: 20250929
  3. DICLOFENAC SODIUM [Suspect]
     Active Substance: DICLOFENAC SODIUM
     Indication: Pelvic fracture

REACTIONS (13)
  - Upper gastrointestinal haemorrhage [Recovered/Resolved]
  - Melaena [Recovered/Resolved]
  - Diarrhoea [Recovered/Resolved]
  - Asthenia [Recovering/Resolving]
  - Dyspnoea [Recovering/Resolving]
  - Discoloured vomit [Recovering/Resolving]
  - Decreased appetite [Recovering/Resolving]
  - Gastric mucosal lesion [Recovering/Resolving]
  - Pallor [Recovering/Resolving]
  - Conjunctival pallor [Recovering/Resolving]
  - Gastrointestinal ulcer haemorrhage [Recovered/Resolved]
  - Pelvic fracture [Unknown]
  - Fall [Unknown]

NARRATIVE: CASE EVENT DATE: 20250901
